FAERS Safety Report 19392917 (Version 1)
Quarter: 2021Q2

REPORT INFORMATION
  Report Type: Spontaneous
  Country: FR (occurrence: FR)
  Receive Date: 20210609
  Receipt Date: 20210609
  Transmission Date: 20210717
  Serious: Yes (Other)
  Sender: FDA-Public Use
  Company Number: FR-AUROBINDO-AUR-APL-2021-023412

PATIENT
  Age: 67 Year
  Sex: Male
  Weight: 80 kg

DRUGS (9)
  1. SUFENTANIL [Suspect]
     Active Substance: SUFENTANIL
     Indication: SEDATION
     Dosage: 10 UG/HEURE, D?LAI 1?RE ADMINISTRATION : J16
     Route: 042
     Dates: start: 20210414, end: 20210524
  2. PROPOFOL. [Suspect]
     Active Substance: PROPOFOL
     Indication: SEDATION
     Dosage: 200 MILLIGRAM, EVERY HOUR(D?LAI 1?RE ADMINISTRATION : J160
     Route: 042
     Dates: start: 20210414, end: 20210511
  3. FUROSEMIDE. [Suspect]
     Active Substance: FUROSEMIDE
     Indication: HYPERTENSION
     Dosage: 40 MILLIGRAM, ONCE A DAY
     Route: 042
     Dates: start: 20210426, end: 20210430
  4. MIDAZOLAM. [Suspect]
     Active Substance: MIDAZOLAM
     Indication: SEDATION
     Dosage: 25 MILLIGRAM, EVERY HOUR(D?LAI 1?RE ADMINISTRATION : J100
     Route: 042
     Dates: start: 20210419, end: 20210509
  5. AMLODIPINE [Suspect]
     Active Substance: AMLODIPINE BESYLATE
     Indication: HYPERTENSION
     Dosage: 10 MILLIGRAM, ONCE A DAY
     Route: 048
     Dates: start: 20210510, end: 20210511
  6. TAZOCILLINE [Suspect]
     Active Substance: PIPERACILLIN SODIUM\TAZOBACTAM SODIUM
     Indication: INFECTION
     Dosage: 4 GRAM, ONCE A DAY
     Route: 042
     Dates: start: 20210428, end: 20210429
  7. NICARDIPINE [Suspect]
     Active Substance: NICARDIPINE
     Indication: HYPERTENSION
     Dosage: 50 MILLIGRAM, ONCE A DAY(2 MG/H, D?LAI 1?RE ADMINISTRATION : J11)
     Route: 042
     Dates: start: 20210418, end: 20210418
  8. URAPIDIL [Suspect]
     Active Substance: URAPIDIL
     Indication: HYPERTENSION
     Dosage: 232 MG, 13 MG/HEURE, D?LAI 1?RE ADMINISTRATION : J4(232 MG, 13 MG / HOUR)
     Route: 042
     Dates: start: 20210426, end: 20210430
  9. LOVENOX [Suspect]
     Active Substance: ENOXAPARIN SODIUM
     Indication: THROMBOSIS PROPHYLAXIS
     Dosage: 0.8 MILLILITER, TWO TIMES A DAY(0.8 ML 2 FOIS PAR JOUR )
     Route: 058
     Dates: start: 20210414

REACTIONS (1)
  - Drug reaction with eosinophilia and systemic symptoms [Recovering/Resolving]

NARRATIVE: CASE EVENT DATE: 20210429
